FAERS Safety Report 6873949-8 (Version None)
Quarter: 2010Q3

REPORT INFORMATION
  Report Type: 
  Country: None (occurrence: None)
  Receive Date: 20100723
  Receipt Date: 20090410
  Transmission Date: 20110219
  Serious: No
  Sender: FDA-Public Use
  Company Number: US-PFIZER INC-2009197080

PATIENT
  Sex: Female
  Weight: 52.154 kg

DRUGS (2)
  1. CHANTIX [Suspect]
     Indication: SMOKING CESSATION THERAPY
     Dosage: UNK
     Dates: start: 20090406
  2. IBUPROFEN [Suspect]

REACTIONS (5)
  - ABDOMINAL DISCOMFORT [None]
  - DRUG INTOLERANCE [None]
  - ERUCTATION [None]
  - INITIAL INSOMNIA [None]
  - MIDDLE INSOMNIA [None]
